FAERS Safety Report 5404797-3 (Version None)
Quarter: 2007Q3

REPORT INFORMATION
  Report Type: 
  Country: None (occurrence: None)
  Receive Date: 20070803
  Receipt Date: 20070727
  Transmission Date: 20080115
  Serious: Yes (Other)
  Sender: FDA-Public Use
  Company Number: PHBS2004BR05074

PATIENT
  Age: 30 Year
  Sex: Male
  Weight: 69 kg

DRUGS (10)
  1. AMPLICTIL [Concomitant]
     Dates: start: 19970101, end: 19990101
  2. TEGRETOL [Suspect]
     Indication: EPILEPSY
     Dosage: 4 TABLET, ONCE/SINGLE
     Route: 048
     Dates: start: 20040510, end: 20040510
  3. TEGRETOL [Suspect]
     Dosage: 200 MG/DAY
     Route: 048
     Dates: start: 19950101, end: 20010101
  4. TEGRETOL [Suspect]
     Dosage: 400 MG/DAY
     Route: 048
     Dates: start: 20010101
  5. TEGRETOL [Suspect]
     Dosage: 2 DF MORNING, 2 DF AFTERNOON
  6. TEGRETOL [Suspect]
     Dosage: 400 MG, BID
     Route: 048
  7. TEGRETOL [Suspect]
     Dosage: 6 TABLETS, ONCE/SINGLE
     Route: 048
     Dates: start: 20040512, end: 20040512
  8. TEGRETOL [Suspect]
     Dosage: 3 TABLET, ONCE/SINGLE
     Route: 048
  9. CHLORDIAZEPOXIDE HCL [Concomitant]
     Dates: start: 20041023
  10. RISPERDAL [Concomitant]

REACTIONS (24)
  - ABNORMAL BEHAVIOUR [None]
  - ACCIDENTAL OVERDOSE [None]
  - AGGRESSION [None]
  - AGITATION [None]
  - BRONCHITIS [None]
  - CHEST PAIN [None]
  - COLD SWEAT [None]
  - DEPRESSION [None]
  - DIZZINESS [None]
  - DRUG HYPERSENSITIVITY [None]
  - DYSPEPSIA [None]
  - ERYTHEMA [None]
  - FLUSHING [None]
  - GAIT DISTURBANCE [None]
  - INFLUENZA [None]
  - NAUSEA [None]
  - NERVOUSNESS [None]
  - PAIN [None]
  - PAIN IN EXTREMITY [None]
  - PNEUMONIA [None]
  - SPEECH DISORDER [None]
  - SYNCOPE [None]
  - TREMOR [None]
  - WEIGHT DECREASED [None]
